FAERS Safety Report 21670235 (Version 1)
Quarter: 2022Q4

REPORT INFORMATION
  Report Type: Report from Study
  Country: CA (occurrence: CA)
  Receive Date: 20221201
  Receipt Date: 20221201
  Transmission Date: 20230113
  Serious: Yes (Other)
  Sender: FDA-Public Use
  Company Number: CA-002147023-NVSC2022CA276182

PATIENT
  Sex: Female

DRUGS (1)
  1. AIMOVIG [Suspect]
     Active Substance: ERENUMAB-AOOE
     Indication: Migraine
     Dosage: UNK
     Route: 065
     Dates: start: 20220502, end: 202208

REACTIONS (5)
  - Syncope [Unknown]
  - Nausea [Unknown]
  - Dizziness [Unknown]
  - Hypoaesthesia [Unknown]
  - Injection site pain [Unknown]
